FAERS Safety Report 9450244 (Version 1)
Quarter: 2013Q3

REPORT INFORMATION
  Report Type: Report from Study
  Country: JP (occurrence: JP)
  Receive Date: 20130809
  Receipt Date: 20130809
  Transmission Date: 20140515
  Serious: Yes (Hospitalization)
  Sender: FDA-Public Use
  Company Number: JP-JNJFOC-20130803158

PATIENT
  Age: 78 Year
  Sex: Male
  Weight: 68 kg

DRUGS (13)
  1. XARELTO [Suspect]
     Indication: THROMBOSIS PROPHYLAXIS
     Route: 048
     Dates: start: 20130403, end: 20130404
  2. XARELTO [Suspect]
     Indication: CEREBROVASCULAR ACCIDENT PROPHYLAXIS
     Route: 048
     Dates: start: 20130403, end: 20130404
  3. OLMETEC [Concomitant]
     Route: 048
  4. NEXIUM [Concomitant]
     Indication: PROPHYLAXIS
     Route: 048
     Dates: end: 20130405
  5. SALOBEL [Concomitant]
     Route: 048
     Dates: end: 20130405
  6. WARFARIN POTASSIUM [Concomitant]
     Route: 065
  7. NORVASC [Concomitant]
     Route: 048
  8. NICORANDIL [Concomitant]
     Indication: PROPHYLAXIS
     Route: 048
     Dates: end: 20130405
  9. CERNILTON [Concomitant]
     Route: 048
     Dates: end: 20130405
  10. HARNAL [Concomitant]
     Route: 048
     Dates: end: 20130405
  11. ASPIRIN [Concomitant]
     Route: 048
     Dates: end: 20130402
  12. LIVALO [Concomitant]
     Route: 048
  13. NITOROL [Concomitant]
     Indication: PROPHYLAXIS
     Route: 048
     Dates: end: 20130405

REACTIONS (1)
  - Drug eruption [Recovered/Resolved]
